FAERS Safety Report 8979714 (Version 1)
Quarter: 2012Q4

REPORT INFORMATION
  Report Type: 
  Country: US (occurrence: US)
  Receive Date: 20121221
  Receipt Date: 20121221
  Transmission Date: 20130627
  Serious: Yes (Hospitalization, Other)
  Sender: FDA-Public Use
  Company Number: US-TEVA-377382USA

PATIENT
  Sex: Female

DRUGS (2)
  1. CLARAVIS [Suspect]
     Indication: ACNE
     Route: 048
  2. ACCUTANE [Suspect]
     Indication: ACNE

REACTIONS (8)
  - Internal injury [Unknown]
  - Haemorrhage [Unknown]
  - Reproductive tract disorder [Unknown]
  - Gynaecological examination abnormal [Unknown]
  - Migraine [Unknown]
  - Abdominal pain [Unknown]
  - Haematochezia [Unknown]
  - Headache [Unknown]
